FAERS Safety Report 12782545 (Version 1)
Quarter: 2016Q3

REPORT INFORMATION
  Report Type: Spontaneous
  Country: US (occurrence: US)
  Receive Date: 20160927
  Receipt Date: 20160927
  Transmission Date: 20161109
  Serious: Yes (Other)
  Sender: FDA-Public Use
  Company Number: None

PATIENT
  Sex: Female

DRUGS (2)
  1. OTEZLA [Suspect]
     Active Substance: APREMILAST
     Indication: PSORIATIC ARTHROPATHY
     Route: 048
     Dates: start: 20160422
  2. ENBREL [Suspect]
     Active Substance: ETANERCEPT
     Route: 058

REACTIONS (3)
  - Skin lesion [None]
  - Erythema [None]
  - Arthritis [None]
